FAERS Safety Report 5239382-X (Version None)
Quarter: 2007Q1

REPORT INFORMATION
  Report Type: 
  Country: None (occurrence: None)
  Receive Date: 20070216
  Receipt Date: 20070207
  Transmission Date: 20070707
  Serious: Yes (Other)
  Sender: FDA-Public Use
  Company Number: 2007UW02663

PATIENT
  Age: 75 Year
  Sex: Female
  Weight: 72 kg

DRUGS (6)
  1. FASLODEX [Suspect]
     Indication: BREAST CANCER
     Route: 030
     Dates: start: 20050701
  2. DIOVAN [Concomitant]
     Indication: HYPERTENSION
     Route: 048
     Dates: start: 20060101
  3. DIORUSA [Concomitant]
     Indication: HYPERTENSION
     Route: 048
     Dates: start: 20060901
  4. DIGOXIN [Concomitant]
     Indication: HYPERTENSION
     Route: 048
     Dates: start: 20060901
  5. AMARIL [Concomitant]
     Indication: DIABETES MELLITUS
     Dosage: } FOUR YEARS DURATION
     Route: 048
  6. OMEPRAZOLE [Concomitant]
     Indication: DYSPEPSIA
     Dosage: } 4 YEARS DURATION
     Route: 048

REACTIONS (6)
  - ABDOMINAL PAIN UPPER [None]
  - ASTHENIA [None]
  - DECREASED APPETITE [None]
  - NAUSEA [None]
  - PAIN [None]
  - WEIGHT DECREASED [None]
